FAERS Safety Report 6635494-4 (Version None)
Quarter: 2010Q1

REPORT INFORMATION
  Report Type: 
  Country: None (occurrence: None)
  Receive Date: 20100315
  Receipt Date: 20090624
  Transmission Date: 20100710
  Serious: No
  Sender: FDA-Public Use
  Company Number: US-ABBOTT-09P-163-0582325-00

PATIENT
  Sex: Female
  Weight: 69.008 kg

DRUGS (6)
  1. DEPAKOTE [Suspect]
     Indication: BIPOLAR DISORDER
     Route: 048
  2. DEPAKOTE [Suspect]
     Indication: MOOD SWINGS
  3. DEPAKOTE ER [Suspect]
     Indication: BIPOLAR DISORDER
     Dosage: 500MG DAILY
     Route: 048
     Dates: start: 20090602, end: 20090616
  4. DEPAKOTE ER [Suspect]
     Indication: MOOD SWINGS
     Dosage: 1000MG PER DAY
     Route: 048
     Dates: start: 20090616
  5. XANAX [Concomitant]
     Indication: DRUG USE FOR UNKNOWN INDICATION
     Dosage: PRN AT HS AND HALF TAB DURING THE DAY
  6. IBUPROFEN [Concomitant]
     Indication: MYALGIA
     Dosage: THREE TIMES DAILY AS REQUIRED
     Route: 048

REACTIONS (9)
  - ARTHRALGIA [None]
  - ASTHENIA [None]
  - DYSURIA [None]
  - INSOMNIA [None]
  - MIGRAINE [None]
  - MOOD ALTERED [None]
  - PAIN [None]
  - SWELLING [None]
  - WEIGHT INCREASED [None]
